FAERS Safety Report 4412926-3 (Version None)
Quarter: 2004Q3

REPORT INFORMATION
  Report Type: 
  Country: None (occurrence: None)
  Receive Date: 20040730
  Receipt Date: 20040730
  Transmission Date: 20050211
  Serious: No
  Sender: FDA-Public Use
  Company Number: None

PATIENT
  Age: 83 Year
  Sex: Female
  Weight: 82.5547 kg

DRUGS (9)
  1. ACTOS [Suspect]
     Indication: DIABETES MELLITUS
     Dosage: 45 MG PO QD
     Route: 048
     Dates: start: 20040724, end: 20040725
  2. AMARYL [Concomitant]
  3. APRESOLINE [Concomitant]
  4. ASPIRIN [Concomitant]
  5. CARDIZEM [Concomitant]
  6. NORVASC [Concomitant]
  7. PLAVIX [Concomitant]
  8. PROTONIX [Concomitant]
  9. REMERON [Concomitant]

REACTIONS (2)
  - ALANINE AMINOTRANSFERASE INCREASED [None]
  - ASPARTATE AMINOTRANSFERASE INCREASED [None]
